FAERS Safety Report 6668912-6 (Version None)
Quarter: 2010Q2

REPORT INFORMATION
  Report Type: 
  Country: None (occurrence: None)
  Receive Date: 20100401
  Receipt Date: 20100317
  Transmission Date: 20101027
  Serious: Yes (Death)
  Sender: FDA-Public Use
  Company Number: 2010000914

PATIENT
  Age: 62 Year
  Sex: Male
  Weight: 48 kg

DRUGS (6)
  1. ERLOTINIB (ERLOTINIB) (TABLET) (ERLOTINIB) [Suspect]
     Indication: LUNG ADENOCARCINOMA
     Dosage: (150 MG, QD), ORAL
     Route: 048
     Dates: start: 20090626, end: 20090730
  2. CANDESARTAN CILEXETIL [Concomitant]
  3. PLETAL [Concomitant]
  4. PROSTANDIN (ALPROSTANDIL) [Concomitant]
  5. FENTANYL-100 [Concomitant]
  6. LOXONIN (LOXOPROFEN SODIUM) [Concomitant]

REACTIONS (3)
  - ANAEMIA [None]
  - LUNG ADENOCARCINOMA [None]
  - MALIGNANT NEOPLASM PROGRESSION [None]
